FAERS Safety Report 11098337 (Version 1)
Quarter: 2015Q2

REPORT INFORMATION
  Report Type: Report from Study
  Country: US (occurrence: US)
  Receive Date: 20150507
  Receipt Date: 20150507
  Transmission Date: 20150821
  Serious: Yes (Other)
  Sender: FDA-Public Use
  Company Number: PHEH2015US008402

PATIENT
  Sex: Male

DRUGS (1)
  1. TRILEPTAL [Suspect]
     Active Substance: OXCARBAZEPINE
     Indication: PRODUCT USED FOR UNKNOWN INDICATION
     Dosage: 600 MG, BID
     Route: 048

REACTIONS (7)
  - Temporal lobe epilepsy [Unknown]
  - Unresponsive to stimuli [Unknown]
  - Staring [Unknown]
  - Seizure [Unknown]
  - Memory impairment [Unknown]
  - Eye movement disorder [Unknown]
  - Tremor [Unknown]
